FAERS Safety Report 9347387 (Version 1)
Quarter: 2013Q2

REPORT INFORMATION
  Report Type: Spontaneous
  Country: US (occurrence: US)
  Receive Date: 20130613
  Receipt Date: 20130613
  Transmission Date: 20140414
  Serious: Yes (Hospitalization)
  Sender: FDA-Public Use
  Company Number: US-009507513-1306USA004914

PATIENT
  Age: 92 Year
  Sex: Male

DRUGS (2)
  1. JANUVIA [Suspect]
     Indication: BLOOD GLUCOSE INCREASED
     Dosage: UNK
     Route: 048
     Dates: start: 20130520, end: 20130605
  2. JANUVIA [Suspect]
     Indication: BLOOD GLUCOSE ABNORMAL

REACTIONS (7)
  - Blood calcium increased [Recovering/Resolving]
  - Confusional state [Recovering/Resolving]
  - Dizziness [Recovering/Resolving]
  - Fatigue [Recovering/Resolving]
  - Speech disorder [Recovering/Resolving]
  - Dysarthria [Recovering/Resolving]
  - General physical health deterioration [Recovering/Resolving]
